FAERS Safety Report 5169798-1 (Version None)
Quarter: 2006Q4

REPORT INFORMATION
  Report Type: 
  Country: None (occurrence: None)
  Receive Date: 20061212
  Receipt Date: 20061109
  Transmission Date: 20070319
  Serious: Yes (Other)
  Sender: FDA-Public Use
  Company Number: FR-AVENTIS-200613947FR

PATIENT
  Age: 24 Year
  Sex: Female
  Weight: 52 kg

DRUGS (3)
  1. ARAVA [Suspect]
     Indication: RHEUMATOID ARTHRITIS
     Route: 048
     Dates: end: 20060101
  2. QUESTRAN [Suspect]
     Route: 048
     Dates: start: 20061107, end: 20061111
  3. QUESTRAN [Suspect]
     Route: 048
     Dates: start: 20061113

REACTIONS (4)
  - DIARRHOEA [None]
  - LOSS OF CONSCIOUSNESS [None]
  - SYNCOPE VASOVAGAL [None]
  - VOMITING [None]
